APPROVED DRUG PRODUCT: VALSARTAN
Active Ingredient: VALSARTAN
Strength: 4MG/ML
Dosage Form/Route: SOLUTION;ORAL
Application: A214102 | Product #001 | TE Code: AB
Applicant: NOVITIUM PHARMA LLC
Approved: Nov 2, 2021 | RLD: No | RS: Yes | Type: RX